FAERS Safety Report 20932420 (Version 2)
Quarter: 2022Q3

REPORT INFORMATION
  Report Type: Spontaneous
  Country: US (occurrence: None)
  Receive Date: 20220608
  Receipt Date: 20220707
  Transmission Date: 20221027
  Serious: No
  Sender: FDA-Public Use
  Company Number: US-ROCHE-3112071

PATIENT
  Sex: Male
  Weight: 79.450 kg

DRUGS (7)
  1. OCREVUS [Suspect]
     Active Substance: OCRELIZUMAB
     Indication: Relapsing-remitting multiple sclerosis
     Dosage: YES
     Route: 042
     Dates: start: 2018
  2. PFIZER-BIONTECH COVID-19 VACCINE [Suspect]
     Active Substance: TOZINAMERAN
     Indication: Product used for unknown indication
     Dosage: 29/MAR/2021 AND BOOSTER ON 17/FEB/2022
     Route: 065
     Dates: start: 20210308
  3. ALBUTEROL [Concomitant]
     Active Substance: ALBUTEROL
     Indication: Dyspnoea
     Route: 055
  4. ALBUTEROL [Concomitant]
     Active Substance: ALBUTEROL
     Indication: Cough
  5. BACLOFEN [Concomitant]
     Active Substance: BACLOFEN
     Indication: Muscle spasticity
     Dosage: 10MG IN THE MORNING, 20MG BEFORE BED ;ONGOING: YES
     Route: 048
     Dates: start: 2014
  6. TESTOSTERONE [Concomitant]
     Active Substance: TESTOSTERONE
     Indication: Gender dysphoria
     Dosage: YES
     Route: 030
     Dates: start: 20150101
  7. ERGOCALCIFEROL [Concomitant]
     Active Substance: ERGOCALCIFEROL
     Indication: Relapsing-remitting multiple sclerosis
     Dosage: YES
     Route: 048

REACTIONS (6)
  - COVID-19 [Recovered/Resolved]
  - Pain [Recovered/Resolved]
  - Pyrexia [Not Recovered/Not Resolved]
  - Dyspnoea [Not Recovered/Not Resolved]
  - Cough [Not Recovered/Not Resolved]
  - SARS-CoV-2 antibody test negative [Unknown]

NARRATIVE: CASE EVENT DATE: 20210101
